FAERS Safety Report 4503112-7 (Version None)
Quarter: 2004Q4

REPORT INFORMATION
  Report Type: 
  Country: None (occurrence: None)
  Receive Date: 20041117
  Receipt Date: 20041105
  Transmission Date: 20050328
  Serious: Yes (Hospitalization)
  Sender: FDA-Public Use
  Company Number: US-ROCHE-385580

PATIENT

DRUGS (5)
  1. MYCOPHENOLATE MOFETIL [Suspect]
     Route: 048
  2. THYMOGLOBULIN [Suspect]
     Dosage: PER DAY ON DAYS 0, 1, 2, 4 AND 6
     Route: 065
  3. PREDNISONE [Suspect]
     Dosage: DOSE TAPERED FROM 500 MG/D INITIALLY TO 10 MG/D BY DAY 52.
     Route: 065
  4. COUMADIN [Concomitant]
     Indication: DEEP VEIN THROMBOSIS
  5. HEPARIN [Concomitant]

REACTIONS (10)
  - ATHEROSCLEROSIS [None]
  - BLOOD CULTURE POSITIVE [None]
  - DEEP VEIN THROMBOSIS [None]
  - HAEMORRHAGIC STROKE [None]
  - INTERNATIONAL NORMALISED RATIO DECREASED [None]
  - ISCHAEMIC ULCER [None]
  - LOCALISED INFECTION [None]
  - LYMPHOCELE [None]
  - PULMONARY EMBOLISM [None]
  - REACTION TO DRUG EXCIPIENT [None]
